FAERS Safety Report 5026924-2 (Version None)
Quarter: 2006Q2

REPORT INFORMATION
  Report Type: 
  Country: None (occurrence: None)
  Receive Date: 20060609
  Receipt Date: 20060601
  Transmission Date: 20061013
  Serious: Yes (Other)
  Sender: FDA-Public Use
  Company Number: 2006071815

PATIENT
  Age: 24 Year
  Sex: Male
  Weight: 95.2554 kg

DRUGS (6)
  1. CETIRIZINE HCL [Suspect]
     Indication: ILL-DEFINED DISORDER
  2. MONTELUKAST SODIUM (MONTELUKAST SODIUM) [Concomitant]
  3. NASONEX [Concomitant]
  4. FLOVENT [Concomitant]
  5. BRICANYL [Concomitant]
  6. LIVOSTIN [Concomitant]

REACTIONS (1)
  - ASTHMA [None]
